FAERS Safety Report 6120790-X (Version None)
Quarter: 2009Q1

REPORT INFORMATION
  Report Type: 
  Country: None (occurrence: None)
  Receive Date: 20090312
  Receipt Date: 20090226
  Transmission Date: 20090719
  Serious: Yes (Death)
  Sender: FDA-Public Use
  Company Number: 2009000233

PATIENT
  Age: 84 Year
  Sex: Female

DRUGS (7)
  1. ERLOTINIB (ERLOTINIB) (TABLET) (ERLOTINIB) [Suspect]
     Indication: NON-SMALL CELL LUNG CANCER
     Dosage: (150 MILLICURIES,QD),ORAL
     Route: 048
     Dates: start: 20081125, end: 20081225
  2. AMLODIPINE BESYLATE [Concomitant]
  3. OLMETEC [Concomitant]
  4. COMELIAN (DILAZEP DIHYDROCHLORIDE) [Concomitant]
  5. DAI-KENCHU-TO [Concomitant]
  6. MAGNESIUM OXIDE (MAGNESIUM OXIDE) [Concomitant]
  7. BENFOTIAMINE (BENFOTIAMINE) [Concomitant]

REACTIONS (3)
  - CONCOMITANT DISEASE PROGRESSION [None]
  - LUNG ADENOCARCINOMA [None]
  - MALIGNANT NEOPLASM PROGRESSION [None]
